FAERS Safety Report 12447464 (Version 1)
Quarter: 2016Q2

REPORT INFORMATION
  Report Type: Spontaneous
  Country: US (occurrence: US)
  Receive Date: 20160608
  Receipt Date: 20160608
  Transmission Date: 20160815
  Serious: No
  Sender: FDA-Public Use
  Company Number: US-DSJP-DSU-2016-106942

PATIENT
  Age: 53 Year
  Sex: Female
  Weight: 63.39 kg

DRUGS (1)
  1. BENICAR [Suspect]
     Active Substance: OLMESARTAN MEDOXOMIL
     Indication: HYPERTENSION
     Dosage: 20 MG, QD
     Route: 048
     Dates: start: 200704, end: 20140303

REACTIONS (8)
  - Hair disorder [Unknown]
  - Malabsorption [Recovering/Resolving]
  - Diverticulum [Unknown]
  - Haemorrhoids [Unknown]
  - Rash [Unknown]
  - Large intestine polyp [Unknown]
  - Gastrooesophageal reflux disease [Not Recovered/Not Resolved]
  - Depression [Unknown]

NARRATIVE: CASE EVENT DATE: 20101007
